FAERS Safety Report 5307302-5 (Version None)
Quarter: 2007Q1

REPORT INFORMATION
  Report Type: 
  Country: None (occurrence: None)
  Receive Date: 20070201
  Receipt Date: 20061206
  Transmission Date: 20070707
  Serious: No
  Sender: FDA-Public Use
  Company Number: 2006PV026481

PATIENT
  Age: 73 Year
  Sex: Female
  Weight: 91.173 kg

DRUGS (6)
  1. BYETTA [Suspect]
     Indication: DIABETES MELLITUS NON-INSULIN-DEPENDENT
     Dosage: SEE IMAGE
     Route: 058
     Dates: start: 20061010, end: 20061109
  2. BYETTA [Suspect]
     Indication: DIABETES MELLITUS NON-INSULIN-DEPENDENT
     Dosage: SEE IMAGE
     Route: 058
     Dates: start: 20060101
  3. STARLIX [Concomitant]
  4. ACTOS [Concomitant]
  5. METFORMIN HCL [Concomitant]
  6. ASACOL [Concomitant]

REACTIONS (5)
  - ABDOMINAL DISTENSION [None]
  - ABDOMINAL PAIN [None]
  - BLOOD GLUCOSE INCREASED [None]
  - COLITIS ULCERATIVE [None]
  - WEIGHT DECREASED [None]
